FAERS Safety Report 8030500-7 (Version None)
Quarter: 2012Q1

REPORT INFORMATION
  Report Type: 
  Country: None (occurrence: None)
  Receive Date: 20120109
  Receipt Date: 20120104
  Transmission Date: 20120608
  Serious: No
  Sender: FDA-Public Use
  Company Number: US-BAYER-2012-001340

PATIENT
  Age: 87 Year
  Sex: Female
  Weight: 63 kg

DRUGS (3)
  1. NAPROXEN (ALEVE) [Suspect]
     Indication: ARTHRITIS
  2. DIOVAN [Concomitant]
  3. NAPROXEN (ALEVE) [Suspect]
     Dosage: 2 U, UNK

REACTIONS (1)
  - ARTHRALGIA [None]
